FAERS Safety Report 17442071 (Version 2)
Quarter: 2020Q1

REPORT INFORMATION
  Report Type: Spontaneous
  Country: GB (occurrence: GB)
  Receive Date: 20200220
  Receipt Date: 20200305
  Transmission Date: 20200409
  Serious: Yes (Death, Hospitalization, Other)
  Sender: FDA-Public Use
  Company Number: GB-PFIZER INC-2020070573

PATIENT
  Age: 67 Year
  Sex: Male

DRUGS (3)
  1. DOCETAXEL. [Suspect]
     Active Substance: DOCETAXEL
     Indication: PROSTATE CANCER METASTATIC
     Dosage: UNK UNK, QCY
     Route: 042
     Dates: start: 20180509, end: 20180509
  2. DOCETAXEL. [Suspect]
     Active Substance: DOCETAXEL
     Dosage: UNK UNK, QCY
     Dates: start: 20190109, end: 20190109
  3. CABAZITAXEL [Suspect]
     Active Substance: CABAZITAXEL
     Indication: PROSTATE CANCER METASTATIC
     Dosage: UNK UNK, QCY
     Route: 042
     Dates: start: 20190218, end: 20190218

REACTIONS (4)
  - Pneumonia [Fatal]
  - Hydronephrosis [Fatal]
  - Humerus fracture [Fatal]
  - Sepsis [Fatal]

NARRATIVE: CASE EVENT DATE: 20180801
